FAERS Safety Report 18119644 (Version 1)
Quarter: 2020Q3

REPORT INFORMATION
  Report Type: Spontaneous
  Country: GB (occurrence: GB)
  Receive Date: 20200806
  Receipt Date: 20200806
  Transmission Date: 20201103
  Serious: Yes (Other)
  Sender: FDA-Public Use
  Company Number: GB-PFIZER INC-2020295675

PATIENT
  Age: 29 Year
  Sex: Female

DRUGS (8)
  1. THIOPENTONE [THIOPENTAL] [Concomitant]
     Active Substance: THIOPENTAL
     Indication: OVARIAN CYSTECTOMY
  2. MORPHINE [Concomitant]
     Active Substance: MORPHINE
     Indication: INDUCTION OF ANAESTHESIA
     Dosage: 10 MG
  3. THIOPENTONE [THIOPENTAL] [Concomitant]
     Active Substance: THIOPENTAL
     Indication: INDUCTION OF ANAESTHESIA
     Dosage: 350 MG
  4. ATRACURIUM BESILATE [Suspect]
     Active Substance: ATRACURIUM BESYLATE
     Indication: INDUCTION OF ANAESTHESIA
     Dosage: 50 MG (0.625 MG/KG)
  5. ATRACURIUM BESILATE [Suspect]
     Active Substance: ATRACURIUM BESYLATE
     Indication: OVARIAN CYSTECTOMY
  6. MORPHINE [Concomitant]
     Active Substance: MORPHINE
     Indication: OVARIAN CYSTECTOMY
  7. NITROUS OXIDE. [Concomitant]
     Active Substance: NITROUS OXIDE
     Indication: MAINTENANCE OF ANAESTHESIA
     Dosage: UNK
  8. OXYGEN. [Concomitant]
     Active Substance: OXYGEN
     Indication: MAINTENANCE OF ANAESTHESIA
     Dosage: UNK

REACTIONS (2)
  - Atrioventricular block complete [Unknown]
  - Nodal arrhythmia [Recovered/Resolved]
